FAERS Safety Report 9202854 (Version 2)
Quarter: 2013Q2

REPORT INFORMATION
  Report Type: Spontaneous
  Country: US (occurrence: US)
  Receive Date: 20130402
  Receipt Date: 20130409
  Transmission Date: 20140414
  Serious: Yes (Other)
  Sender: FDA-Public Use
  Company Number: US-AMGEN-USASP2013021411

PATIENT
  Age: 20 Year
  Sex: Male
  Weight: 195.1 kg

DRUGS (7)
  1. ENBREL [Suspect]
     Indication: PSORIASIS
     Dosage: 50 MG, 2 TIMES/WK
     Route: 058
     Dates: start: 20130322
  2. ENBREL [Suspect]
     Indication: PSORIATIC ARTHROPATHY
  3. AMLODIPINE [Concomitant]
     Dosage: UNK
     Route: 048
  4. HYDROCODONE [Concomitant]
     Dosage: UNK
     Route: 048
  5. METOPROLOL [Concomitant]
     Dosage: UNK
     Route: 048
  6. HCT [Concomitant]
     Dosage: UNK
     Route: 048
  7. LOSARTAN [Concomitant]
     Dosage: UNK

REACTIONS (7)
  - Dizziness [Not Recovered/Not Resolved]
  - Blood pressure increased [Recovered/Resolved]
  - Heart rate increased [Recovered/Resolved]
  - Dysgeusia [Recovered/Resolved]
  - Nausea [Recovered/Resolved]
  - Vomiting [Recovered/Resolved]
  - Arthralgia [Not Recovered/Not Resolved]
